FAERS Safety Report 4614717-7 (Version None)
Quarter: 2005Q2

REPORT INFORMATION
  Report Type: 
  Country: None (occurrence: None)
  Receive Date: 20050312
  Receipt Date: 20030630
  Transmission Date: 20051028
  Serious: Yes (Hospitalization)
  Sender: FDA-Public Use
  Company Number: F03200300013

PATIENT
  Age: 58 Year
  Sex: Female

DRUGS (3)
  1. OXALIPLATIN - SOLUTION - 130 MG/M2 [Suspect]
     Indication: COLON CANCER
     Dosage: 130 MG/M2 Q3W - INTRAVENOUS NOS
     Route: 042
     Dates: start: 20030422, end: 20030422
  2. OSI-774 - TABLET - 150 MG [Suspect]
     Indication: COLON CANCER
     Dosage: 150 MG QD - ORAL
     Route: 048
     Dates: start: 20030422, end: 20030501
  3. CAPECITABINE - TABLET - 1000 MG/M2 [Suspect]
     Indication: COLON CANCER
     Dosage: SEE IMAGE
     Route: 048
     Dates: start: 20030422, end: 20030501

REACTIONS (4)
  - DIARRHOEA [None]
  - NAUSEA [None]
  - PYREXIA [None]
  - VOMITING [None]
